FAERS Safety Report 8517897-6 (Version None)
Quarter: 2012Q3

REPORT INFORMATION
  Report Type: 
  Country: None (occurrence: None)
  Receive Date: 20120718
  Receipt Date: 20110706
  Transmission Date: 20120928
  Serious: No
  Sender: FDA-Public Use
  Company Number: US-BRISTOL-MYERS SQUIBB COMPANY-15880198

PATIENT
  Age: 83 Year
  Sex: Female

DRUGS (2)
  1. COUMADIN [Suspect]
     Dates: start: 20110607
  2. LOVENOX [Suspect]
     Indication: THROMBOSIS
     Dates: start: 20110607

REACTIONS (1)
  - PAIN IN EXTREMITY [None]
